FAERS Safety Report 9606844 (Version 2)
Quarter: 2013Q4

REPORT INFORMATION
  Report Type: Spontaneous
  Country: US (occurrence: US)
  Receive Date: 20131008
  Receipt Date: 20131008
  Transmission Date: 20140711
  Serious: No
  Sender: FDA-Public Use
  Company Number: US-AMGEN-USASP2013057965

PATIENT
  Age: 56 Year
  Sex: Female
  Weight: 52.15 kg

DRUGS (3)
  1. PROLIA [Suspect]
     Indication: OSTEOPOROSIS
     Dosage: 60 MG, Q6MO
     Route: 058
     Dates: start: 20130725
  2. TENORMIN [Concomitant]
     Indication: MITRAL VALVE PROLAPSE
     Dosage: 25 MG, ONE TIME DOSE
     Route: 048
  3. DESYREL [Concomitant]
     Indication: INSOMNIA
     Dosage: 100 MG, ONE TIME DOSE
     Route: 048

REACTIONS (3)
  - Pruritus [Unknown]
  - Drug hypersensitivity [Unknown]
  - Rash [Unknown]
